FAERS Safety Report 5595602-3 (Version None)
Quarter: 2008Q1

REPORT INFORMATION
  Report Type: 
  Country: None (occurrence: None)
  Receive Date: 20080118
  Receipt Date: 20080115
  Transmission Date: 20080703
  Serious: Yes (Death)
  Sender: FDA-Public Use
  Company Number: GB-BRACCO-BRO-012404

PATIENT
  Sex: Female

DRUGS (1)
  1. NIOPAM [Suspect]
     Indication: COMPUTERISED TOMOGRAM ABDOMEN
     Route: 065
     Dates: start: 20071122, end: 20071122

REACTIONS (2)
  - DEATH [None]
  - VOMITING [None]
